FAERS Safety Report 13695492 (Version 8)
Quarter: 2022Q1

REPORT INFORMATION
  Report Type: Report from Study
  Country: US (occurrence: US)
  Receive Date: 20170627
  Receipt Date: 20220303
  Transmission Date: 20220423
  Serious: Yes (Other)
  Sender: FDA-Public Use
  Company Number: US-TEVA-781396USA

PATIENT
  Age: 71 Year
  Sex: Male

DRUGS (14)
  1. AUSTEDO [Suspect]
     Active Substance: DEUTETRABENAZINE
     Indication: Huntington^s disease
     Dosage: 18 MILLIGRAM DAILY;
     Route: 065
     Dates: start: 2017
  2. AUSTEDO [Suspect]
     Active Substance: DEUTETRABENAZINE
     Dosage: 24 MILLIGRAM DAILY;
     Route: 065
     Dates: start: 20170617
  3. AUSTEDO [Suspect]
     Active Substance: DEUTETRABENAZINE
     Dosage: DATE UNKNOWN
     Route: 065
  4. AUSTEDO [Suspect]
     Active Substance: DEUTETRABENAZINE
     Dosage: 12 MILLIGRAM DAILY; RESOLUTION OF SYMPTOMS WITH THIS DOSING; LAST DOSING TAKEN BEFORE RUNNING OUT
     Route: 065
     Dates: end: 20170630
  5. AUSTEDO [Suspect]
     Active Substance: DEUTETRABENAZINE
     Dosage: 15 MILLIGRAM DAILY; ONE 6 MG IN AM AND ONE 9 MG AT NIGHT
     Route: 065
     Dates: start: 20170625, end: 201706
  6. AUSTEDO [Suspect]
     Active Substance: DEUTETRABENAZINE
     Dosage: 15 MILLIGRAM DAILY;
     Route: 065
     Dates: start: 20170720
  7. AUSTEDO [Suspect]
     Active Substance: DEUTETRABENAZINE
     Dosage: ONE 6 MG IN AM AND ONE 9 MG AT NIGHT
     Route: 065
     Dates: start: 20170814
  8. AUSTEDO [Suspect]
     Active Substance: DEUTETRABENAZINE
     Dosage: 12 MILLIGRAM DAILY; BID
     Route: 048
     Dates: start: 2017
  9. SIMVASTATIN [Concomitant]
     Active Substance: SIMVASTATIN
  10. MIRTAZAPINE [Concomitant]
     Active Substance: MIRTAZAPINE
  11. RISPERDAL [Concomitant]
     Active Substance: RISPERIDONE
     Dosage: 1 MILLIGRAM DAILY;
  12. LISINOPRIL [Concomitant]
     Active Substance: LISINOPRIL
  13. ARICEPT [Concomitant]
     Active Substance: DONEPEZIL HYDROCHLORIDE
  14. VITAMIN D [Concomitant]
     Active Substance: VITAMIN D NOS

REACTIONS (11)
  - Fall [Recovered/Resolved]
  - Motor dysfunction [Not Recovered/Not Resolved]
  - Posture abnormal [Not Recovered/Not Resolved]
  - Gait disturbance [Recovered/Resolved]
  - Dysstasia [Recovered/Resolved]
  - Muscular weakness [Recovered/Resolved]
  - Balance disorder [Unknown]
  - Depression [Recovering/Resolving]
  - Drug ineffective [Unknown]
  - Wrong technique in product usage process [Unknown]
  - Loss of personal independence in daily activities [Unknown]

NARRATIVE: CASE EVENT DATE: 20170101
